FAERS Safety Report 7829862-2 (Version None)
Quarter: 2011Q4

REPORT INFORMATION
  Report Type: 
  Country: None (occurrence: None)
  Receive Date: 20111021
  Receipt Date: 20111018
  Transmission Date: 20120403
  Serious: Yes (Death, Hospitalization, Other)
  Sender: FDA-Public Use
  Company Number: IE-AMGEN-IRLSP2011042551

PATIENT
  Age: 85 Year
  Sex: Female

DRUGS (6)
  1. CENTYL [Concomitant]
     Indication: BLOOD PRESSURE INCREASED
     Dosage: UNK
  2. NEULASTA [Suspect]
     Indication: PANCYTOPENIA
  3. ANTINEOPLASTIC AGENTS [Concomitant]
  4. VALSARTAN [Concomitant]
     Indication: BLOOD PRESSURE INCREASED
     Dosage: UNK
     Route: 048
  5. NEULASTA [Suspect]
     Indication: CHEMOTHERAPY
     Dosage: 6 MG, UNK
     Route: 058
     Dates: start: 20110712
  6. ARANESP [Suspect]
     Indication: PANCYTOPENIA
     Dosage: 500 MUG, UNK
     Route: 058
     Dates: start: 20110712

REACTIONS (3)
  - MYELODYSPLASTIC SYNDROME [None]
  - DEATH [None]
  - HOSPITALISATION [None]
